FAERS Safety Report 21481370 (Version 1)
Quarter: 2022Q4

REPORT INFORMATION
  Report Type: Spontaneous
  Country: US (occurrence: None)
  Receive Date: 20221019
  Receipt Date: 20221019
  Transmission Date: 20230113
  Serious: Yes (Death)
  Sender: FDA-Public Use
  Company Number: None

PATIENT
  Age: 60 Year
  Sex: Female
  Weight: 97.98 kg

DRUGS (14)
  1. TASIGNA [Suspect]
     Active Substance: NILOTINIB
     Indication: Chronic myeloid leukaemia
     Dosage: 150MG  EVERYOTHERDAY ORAL
     Route: 048
     Dates: start: 202203, end: 20221014
  2. ALLOPURINOL [Concomitant]
     Active Substance: ALLOPURINOL
  3. CARVEDILOL [Concomitant]
     Active Substance: CARVEDILOL
  4. FERROUS SULFATE [Concomitant]
     Active Substance: FERROUS SULFATE
  5. IRON [Concomitant]
     Active Substance: IRON
  6. LAMOTRIGINE EXTENDED RELEASE [Concomitant]
     Active Substance: LAMOTRIGINE
  7. XARELTO [Concomitant]
     Active Substance: RIVAROXABAN
  8. TYLENOL WITH CODEINE [Concomitant]
     Active Substance: ACETAMINOPHEN\CODEINE PHOSPHATE
  9. LEVALBUTEROL TARTRATE [Concomitant]
     Active Substance: LEVALBUTEROL TARTRATE
  10. IRBESARTAN [Concomitant]
     Active Substance: IRBESARTAN
  11. FUROSEMIDE [Concomitant]
     Active Substance: FUROSEMIDE
  12. DOCUSATE SODIUM [Concomitant]
     Active Substance: DOCUSATE SODIUM
  13. ACETAMINOPHEN\HYDROCODONE [Concomitant]
     Active Substance: ACETAMINOPHEN\HYDROCODONE
  14. Lactulose Oral [Concomitant]

REACTIONS (2)
  - Cardiac operation [None]
  - Procedural complication [None]
